FAERS Safety Report 7938298-5 (Version None)
Quarter: 2011Q4

REPORT INFORMATION
  Report Type: 
  Country: None (occurrence: None)
  Receive Date: 20111123
  Receipt Date: 20111113
  Transmission Date: 20120403
  Serious: Yes (Other)
  Sender: FDA-Public Use
  Company Number: PL-CELGENEUS-129-50794-11111835

PATIENT
  Sex: Female

DRUGS (1)
  1. VIDAZA [Suspect]
     Route: 065

REACTIONS (5)
  - TROPONIN INCREASED [None]
  - ASTHENIA [None]
  - ANAEMIA [None]
  - ANGINA PECTORIS [None]
  - THROMBOCYTOSIS [None]
